FAERS Safety Report 23310385 (Version 1)
Quarter: 2023Q4

REPORT INFORMATION
  Report Type: Spontaneous
  Country: MY (occurrence: MY)
  Receive Date: 20231218
  Receipt Date: 20231218
  Transmission Date: 20240109
  Serious: Yes (Hospitalization)
  Sender: FDA-Public Use
  Company Number: MY-GLAXOSMITHKLINE-MY2023APC173400

PATIENT

DRUGS (25)
  1. LAMOTRIGINE [Suspect]
     Active Substance: LAMOTRIGINE
     Indication: Seizure
     Dosage: 50 MG, BID
     Dates: start: 202012
  2. LAMOTRIGINE [Suspect]
     Active Substance: LAMOTRIGINE
     Dosage: 100 MG, BID
     Dates: start: 202105
  3. LEVETIRACETAM [Suspect]
     Active Substance: LEVETIRACETAM
     Indication: Seizure
     Dosage: 500 MG, BID
     Dates: start: 201909
  4. LEVETIRACETAM [Suspect]
     Active Substance: LEVETIRACETAM
     Dosage: 750 MG, BID
     Dates: start: 201911
  5. LEVETIRACETAM [Suspect]
     Active Substance: LEVETIRACETAM
     Dosage: 1 G, BID
     Dates: start: 201912
  6. LEVETIRACETAM [Suspect]
     Active Substance: LEVETIRACETAM
     Dosage: 500 MG, BID
     Dates: start: 202007
  7. LEVETIRACETAM [Suspect]
     Active Substance: LEVETIRACETAM
     Dosage: 1 G, BID
     Dates: start: 202007
  8. LEVETIRACETAM [Suspect]
     Active Substance: LEVETIRACETAM
     Dosage: 1 G, BID
     Dates: start: 202012
  9. LEVETIRACETAM [Suspect]
     Active Substance: LEVETIRACETAM
     Dosage: 1.5 G, BID
     Dates: start: 202105
  10. LEVETIRACETAM [Suspect]
     Active Substance: LEVETIRACETAM
     Dosage: 1.5 G, BID
     Dates: start: 202106
  11. LEVETIRACETAM [Suspect]
     Active Substance: LEVETIRACETAM
     Dosage: 1 G, BID
     Dates: start: 202111
  12. LEVETIRACETAM [Suspect]
     Active Substance: LEVETIRACETAM
     Dosage: 1 G, BID
     Dates: start: 202201
  13. LEVETIRACETAM [Suspect]
     Active Substance: LEVETIRACETAM
     Dosage: 1 G, BID
     Dates: start: 202203
  14. LEVETIRACETAM [Suspect]
     Active Substance: LEVETIRACETAM
     Dosage: 1.25 G, BID
     Dates: start: 202203
  15. LEVETIRACETAM [Suspect]
     Active Substance: LEVETIRACETAM
     Dosage: 1.5 G, BID
     Dates: start: 202206
  16. LEVETIRACETAM [Suspect]
     Active Substance: LEVETIRACETAM
     Dosage: 1.5 G, BID
     Dates: start: 202208
  17. CLOBAZAM [Suspect]
     Active Substance: CLOBAZAM
     Indication: Seizure
     Dosage: 5 MG, BID
  18. CLOBAZAM [Suspect]
     Active Substance: CLOBAZAM
     Dosage: 5 MG, BID
     Dates: start: 202111
  19. CLOBAZAM [Suspect]
     Active Substance: CLOBAZAM
     Dosage: 5 MG, BID
     Dates: start: 202201
  20. CLOBAZAM [Suspect]
     Active Substance: CLOBAZAM
     Dosage: 5 MG, BID
     Dates: start: 202203
  21. CLOBAZAM [Suspect]
     Active Substance: CLOBAZAM
     Dosage: 10 MG, BID
     Dates: start: 202206
  22. CLOBAZAM [Suspect]
     Active Substance: CLOBAZAM
     Dosage: 15 MG, BID
     Dates: start: 202208
  23. ZONISAMIDE [Suspect]
     Active Substance: ZONISAMIDE
     Indication: Seizure
     Dosage: 100 MG, ON
     Dates: start: 202203
  24. TOPIRAMATE [Suspect]
     Active Substance: TOPIRAMATE
     Indication: Seizure
     Dosage: 25 MG, BID
     Dates: start: 202206
  25. TOPIRAMATE [Suspect]
     Active Substance: TOPIRAMATE
     Dosage: 25 MG, BID
     Dates: start: 202208

REACTIONS (6)
  - Drug intolerance [Unknown]
  - Pruritus [Unknown]
  - Tremor [Unknown]
  - Premature delivery [Unknown]
  - Live birth [Unknown]
  - Exposure during pregnancy [Unknown]
